FAERS Safety Report 8579371-0 (Version None)
Quarter: 2012Q3

REPORT INFORMATION
  Report Type: 
  Country: None (occurrence: None)
  Receive Date: 20120808
  Receipt Date: 20120730
  Transmission Date: 20120928
  Serious: Yes (Other)
  Sender: FDA-Public Use
  Company Number: US-UCBSA-060896

PATIENT
  Age: 43 Year
  Sex: Female
  Weight: 85.73 kg

DRUGS (2)
  1. KEPPRA XR [Suspect]
     Indication: CONVULSION
     Dosage: STRENGTH-750 MG, 2 PILLS DAILY
     Route: 048
  2. LEVOTHROID [Concomitant]
     Route: 048

REACTIONS (1)
  - CONVULSION [None]
